FAERS Safety Report 15566553 (Version 4)
Quarter: 2018Q4

REPORT INFORMATION
  Report Type: Spontaneous
  Country: JP (occurrence: JP)
  Receive Date: 20181030
  Receipt Date: 20181210
  Transmission Date: 20190205
  Serious: Yes (Hospitalization)
  Sender: FDA-Public Use
  Company Number: JP-TEVA-2018-JP-970389

PATIENT
  Age: 71 Year
  Sex: Male

DRUGS (4)
  1. AZILECT [Suspect]
     Active Substance: RASAGILINE MESYLATE
     Indication: PARKINSON^S DISEASE
     Dosage: 1 MILLIGRAM DAILY;
     Route: 048
     Dates: start: 20180720, end: 20181022
  2. CARBIDOPA MONOHYDRATE W/LEVODOPA [Concomitant]
     Route: 065
  3. RABEPRAZOLE SODIUM. [Concomitant]
     Active Substance: RABEPRAZOLE SODIUM
     Route: 065
  4. ELDECALCITOL [Concomitant]
     Active Substance: ELDECALCITOL
     Route: 065

REACTIONS (9)
  - Spinal osteoarthritis [Unknown]
  - Spondylolisthesis [Unknown]
  - Intervertebral disc degeneration [Unknown]
  - Ligamentum flavum hypertrophy [Unknown]
  - Vertebral foraminal stenosis [Unknown]
  - Spinal compression fracture [Unknown]
  - Fall [Not Recovered/Not Resolved]
  - Vertebral osteophyte [Unknown]
  - Spinal compression fracture [Recovered/Resolved]

NARRATIVE: CASE EVENT DATE: 20181004
